FAERS Safety Report 17468992 (Version 4)
Quarter: 2022Q1

REPORT INFORMATION
  Report Type: Spontaneous
  Country: US (occurrence: US)
  Receive Date: 20200227
  Receipt Date: 20220301
  Transmission Date: 20220423
  Serious: No
  Sender: FDA-Public Use
  Company Number: US-AEGERION PHARMACEUTICAL, INC-AEGR004531

PATIENT
  Age: 19 Year
  Sex: Female
  Weight: 63.583 kg

DRUGS (8)
  1. MYALEPT [Suspect]
     Active Substance: METRELEPTIN
     Indication: Lipodystrophy acquired
     Dosage: 10 MG, QD ((2 ML) AT TWO SUBCUTANEOUS SITES, 5 MG (1 ML) AT ONE AND 5 MG (1 ML) AT THE OTHER)
     Route: 058
  2. MYALEPT [Suspect]
     Active Substance: METRELEPTIN
     Dosage: 8 MG, QD (1.6 ML AT TWO SUBCUTANEOUS SITES, 4 MG (0.8 ML) AT ONE AND 4 MG (0.8 ML) AT THE OTHER)
     Route: 058
     Dates: end: 202102
  3. MYALEPT [Suspect]
     Active Substance: METRELEPTIN
     Dosage: UNK
     Route: 058
     Dates: start: 202102
  4. HUMULIN R [Concomitant]
     Active Substance: INSULIN HUMAN
     Indication: Product used for unknown indication
     Dosage: R U-500-500 ML VIAL
  5. CLONIDINE [Concomitant]
     Active Substance: CLONIDINE
     Indication: Product used for unknown indication
     Dosage: 0.3 MG/24 HR PATCH TDWK
  6. ENALAPRIL MALEATE [Concomitant]
     Active Substance: ENALAPRIL MALEATE
     Indication: Product used for unknown indication
     Dosage: 20 MG, UNK
  7. LEVOTHYROXINE SODIUM [Concomitant]
     Active Substance: LEVOTHYROXINE SODIUM
     Indication: Product used for unknown indication
     Dosage: 75 MCG, TABLET
  8. BACTERIOSTATIC WATER [Concomitant]
     Active Substance: WATER
     Indication: Product used for unknown indication

REACTIONS (7)
  - Injection site discolouration [Unknown]
  - Decreased appetite [Not Recovered/Not Resolved]
  - Injection site swelling [Unknown]
  - Malabsorption from injection site [Unknown]
  - Weight decreased [Unknown]
  - Injection site erythema [Unknown]
  - Product dose omission issue [Unknown]

NARRATIVE: CASE EVENT DATE: 20200622
